FAERS Safety Report 12544756 (Version 1)
Quarter: 2016Q3

REPORT INFORMATION
  Report Type: Spontaneous
  Country: US (occurrence: US)
  Receive Date: 20160711
  Receipt Date: 20160711
  Transmission Date: 20161109
  Serious: No
  Sender: FDA-Public Use
  Company Number: US-ELI_LILLY_AND_COMPANY-US201606008584

PATIENT
  Age: 61 Year
  Sex: Male
  Weight: 74.83 kg

DRUGS (3)
  1. TRULICITY [Suspect]
     Active Substance: DULAGLUTIDE
     Indication: TYPE 1 DIABETES MELLITUS
     Dosage: 1.5 MG, WEEKLY (1/W)
     Route: 065
     Dates: start: 201605
  2. LANTUS [Concomitant]
     Active Substance: INSULIN GLARGINE
  3. HUMALOG MIX50/50 [Suspect]
     Active Substance: INSULIN LISPRO
     Indication: TYPE 1 DIABETES MELLITUS
     Dosage: 3 UNITS, IF SUGAR IS OVER 300 TAKES 8 UNITS, IF CLOSE TO 400 TAKES 10-11 UNITS
     Route: 065

REACTIONS (8)
  - Vomiting [Unknown]
  - Glycosylated haemoglobin increased [Recovered/Resolved]
  - Rash erythematous [Unknown]
  - Off label use [Unknown]
  - Urticaria [Unknown]
  - Dizziness [Unknown]
  - Weight decreased [Unknown]
  - Nausea [Unknown]

NARRATIVE: CASE EVENT DATE: 201605
